FAERS Safety Report 9328650 (Version 1)
Quarter: 2013Q2

REPORT INFORMATION
  Report Type: Spontaneous
  Country: US (occurrence: US)
  Receive Date: 20130604
  Receipt Date: 20130604
  Transmission Date: 20140414
  Serious: Yes (Life-Threatening)
  Sender: FDA-Public Use
  Company Number: US-SANOFI-AVENTIS-2013SA008992

PATIENT
  Age: 36 Year
  Sex: Female

DRUGS (2)
  1. LANTUS [Suspect]
     Dosage: DOSE:70 UNIT(S)
     Route: 058
     Dates: start: 201301
  2. LANTUS [Suspect]
     Dosage: 60 UNITS IN THE AM AND 30 UNITS IN THE EVENING
     Route: 058
     Dates: start: 2012, end: 201301

REACTIONS (3)
  - Hypoglycaemia [Recovered/Resolved]
  - Blood glucose decreased [Not Recovered/Not Resolved]
  - Weight decreased [Unknown]
